FAERS Safety Report 20756027 (Version 1)
Quarter: 2022Q2

REPORT INFORMATION
  Report Type: Spontaneous
  Country: US (occurrence: None)
  Receive Date: 20220426
  Receipt Date: 20220426
  Transmission Date: 20220720
  Serious: Yes (Hospitalization)
  Sender: FDA-Public Use
  Company Number: None

PATIENT
  Age: 62 Year
  Sex: Female

DRUGS (11)
  1. AMBRISENTAN [Suspect]
     Active Substance: AMBRISENTAN
     Indication: Pulmonary arterial hypertension
     Dosage: FREQUENCY : 1 TABLET EVERY 24 HOURS?
     Route: 048
     Dates: start: 20200619
  2. FLECAINIDE [Concomitant]
     Active Substance: FLECAINIDE
  3. FUROSEMIDE [Concomitant]
     Active Substance: FUROSEMIDE
  4. LAMOTRIGINE [Concomitant]
     Active Substance: LAMOTRIGINE
  5. METOPROL SUC TAB 50MG ER [Concomitant]
  6. MIDODRINE TAB 10MG [Concomitant]
  7. MULTIPLE VIT TAB [Concomitant]
  8. MYCOPHENOLATE MOFETIL [Concomitant]
     Active Substance: MYCOPHENOLATE MOFETIL
  9. PREDNISONE [Concomitant]
     Active Substance: PREDNISONE
  10. TADALAFIL [Concomitant]
     Active Substance: TADALAFIL
  11. TYVASO REFIL SOL 0.6MG/ML [Concomitant]

REACTIONS (2)
  - Cardiac operation [None]
  - Hypervolaemia [None]

NARRATIVE: CASE EVENT DATE: 20220418
